FAERS Safety Report 5712548-8 (Version None)
Quarter: 2008Q2

REPORT INFORMATION
  Report Type: 
  Country: None (occurrence: None)
  Receive Date: 20080422
  Receipt Date: 20080408
  Transmission Date: 20081010
  Serious: Yes (Hospitalization, Other)
  Sender: FDA-Public Use
  Company Number: US-AMGEN-QUU273675

PATIENT
  Sex: Female

DRUGS (2)
  1. ENBREL [Suspect]
     Indication: RHEUMATOID ARTHRITIS
     Route: 058
     Dates: start: 20031101
  2. METHOTREXATE [Concomitant]
     Route: 048

REACTIONS (5)
  - COUGH [None]
  - HIP ARTHROPLASTY [None]
  - PNEUMONIA [None]
  - RHEUMATOID ARTHRITIS [None]
  - SINUSITIS [None]
